FAERS Safety Report 9825606 (Version 2)
Quarter: 2014Q1

REPORT INFORMATION
  Report Type: Spontaneous
  Country: JP (occurrence: JP)
  Receive Date: 20140117
  Receipt Date: 20140117
  Transmission Date: 20141002
  Serious: Yes (Other)
  Sender: FDA-Public Use
  Company Number: JP-AMGEN-JPNSP2013089543

PATIENT
  Age: 78 Year
  Sex: Female

DRUGS (3)
  1. RANMARK [Suspect]
     Indication: PLASMA CELL MYELOMA
     Dosage: 120 MG, QMO
     Route: 058
     Dates: start: 20131126, end: 20131126
  2. CALCIUM LACTATE [Suspect]
     Indication: PRODUCT USED FOR UNKNOWN INDICATION
     Route: 048
     Dates: start: 20131126, end: 20131210
  3. ONEALFA [Suspect]
     Indication: PRODUCT USED FOR UNKNOWN INDICATION
     Route: 048
     Dates: start: 20131126, end: 20131210

REACTIONS (1)
  - Hypercalcaemia [Recovered/Resolved]
